FAERS Safety Report 7980399-X (Version None)
Quarter: 2011Q4

REPORT INFORMATION
  Report Type: 
  Country: None (occurrence: None)
  Receive Date: 20111214
  Receipt Date: 20111202
  Transmission Date: 20120403
  Serious: Yes (Life-Threatening, Hospitalization)
  Sender: FDA-Public Use
  Company Number: DE-CELGENEUS-062-50794-11111591

PATIENT
  Age: 61 Year
  Sex: Male
  Weight: 89 kg

DRUGS (7)
  1. ETOPOSIDE [Suspect]
     Indication: ACUTE MYELOID LEUKAEMIA
     Dosage: 200 MILLIGRAM
     Route: 065
     Dates: start: 20111024, end: 20111026
  2. VIDAZA [Suspect]
     Indication: ACUTE MYELOID LEUKAEMIA
     Dosage: 200 MILLIGRAM
     Route: 065
     Dates: start: 20111027, end: 20111031
  3. VIDAZA [Suspect]
     Dosage: 200 MILLIGRAM
     Route: 065
     Dates: start: 20111201, end: 20111205
  4. IDARUBICIN HCL [Suspect]
     Dosage: 24 MILLIGRAM
     Dates: start: 20111128, end: 20111130
  5. ETOPOSIDE [Suspect]
     Dosage: 200 MILLIGRAM
     Route: 065
     Dates: start: 20111128, end: 20111130
  6. AMBISOME [Concomitant]
     Route: 041
     Dates: start: 20111105, end: 20111124
  7. IDARUBICIN HCL [Suspect]
     Indication: ACUTE MYELOID LEUKAEMIA
     Dosage: 24 MILLIGRAM
     Route: 065
     Dates: start: 20111024, end: 20111028

REACTIONS (2)
  - SEPSIS [None]
  - PNEUMONIA [None]
